FAERS Safety Report 6599762-7 (Version None)
Quarter: 2010Q1

REPORT INFORMATION
  Report Type: 
  Country: None (occurrence: None)
  Receive Date: 20100217
  Receipt Date: 20100202
  Transmission Date: 20100710
  Serious: Yes (Hospitalization)
  Sender: FDA-Public Use
  Company Number: 005174

PATIENT
  Sex: Female

DRUGS (1)
  1. CIMZIA [Suspect]
     Indication: CROHN'S DISEASE
     Dosage: (SUBCUTANEOUS)
     Route: 058
     Dates: start: 20081001

REACTIONS (5)
  - FISTULA [None]
  - INTESTINAL STENOSIS [None]
  - MALNUTRITION [None]
  - PAIN [None]
  - POST PROCEDURAL DIARRHOEA [None]
